FAERS Safety Report 10074352 (Version 5)
Quarter: 2015Q2

REPORT INFORMATION
  Report Type: Spontaneous
  Country: US (occurrence: US)
  Receive Date: 20140413
  Receipt Date: 20150408
  Transmission Date: 20150821
  Serious: No
  Sender: FDA-Public Use
  Company Number: US-009507513-1404USA002528

PATIENT
  Sex: Male
  Weight: 100.68 kg

DRUGS (1)
  1. PROPECIA [Suspect]
     Active Substance: FINASTERIDE
     Indication: ALOPECIA
     Dosage: 1 MG, QD
     Route: 048
     Dates: start: 20110512, end: 201110

REACTIONS (29)
  - Ankle fracture [Unknown]
  - Sensitivity of teeth [Unknown]
  - Gastrooesophageal reflux disease [Unknown]
  - Headache [Unknown]
  - Limb operation [Unknown]
  - Eye operation [Unknown]
  - Sexual dysfunction [Not Recovered/Not Resolved]
  - Snoring [Unknown]
  - Vision blurred [Unknown]
  - Dyslipidaemia [Unknown]
  - Irritable bowel syndrome [Unknown]
  - Synovial cyst [Unknown]
  - Weight increased [Unknown]
  - Blood testosterone decreased [Unknown]
  - Anxiety [Unknown]
  - Liposuction [Unknown]
  - Concussion [Unknown]
  - Motion sickness [Unknown]
  - Hypogonadism [Unknown]
  - Orthostatic hypotension [Unknown]
  - Haemorrhoids [Unknown]
  - Vitamin D deficiency [Unknown]
  - Erectile dysfunction [Not Recovered/Not Resolved]
  - Migraine [Unknown]
  - Hyperlipidaemia [Unknown]
  - Poor quality sleep [Unknown]
  - Gout [Unknown]
  - Arthroscopy [Unknown]
  - Vertigo [Unknown]

NARRATIVE: CASE EVENT DATE: 201108
